FAERS Safety Report 9188963 (Version 2)
Quarter: 2013Q2

REPORT INFORMATION
  Report Type: Spontaneous
  Country: GB (occurrence: GB)
  Receive Date: 20130326
  Receipt Date: 20130607
  Transmission Date: 20140414
  Serious: Yes (Hospitalization, Other)
  Sender: FDA-Public Use
  Company Number: GB-B.I. PHARMACEUTICALS,INC./RIDGEFIELD-2013-UK-00408UK

PATIENT
  Age: 67 Year
  Sex: Male

DRUGS (13)
  1. PRADAXA [Suspect]
     Dosage: 300 MG
     Route: 048
     Dates: start: 20120421
  2. INSULIN NOVORAPID [Concomitant]
     Dosage: 20/20ML (14 U)
     Route: 058
  3. BUMETANIDE [Concomitant]
     Dosage: 1 MG
     Route: 048
  4. PERINDOPRIL [Concomitant]
     Dosage: 8 MG
     Route: 048
  5. OMEPRAZOLE [Concomitant]
     Dosage: 40 MG
     Route: 048
  6. ISMO [Concomitant]
     Dosage: 20 MG
     Route: 048
  7. BISOPROLOL [Concomitant]
     Dosage: 2.5 MG
     Route: 048
  8. DOXAZOSIN [Concomitant]
     Dosage: 8 MG
     Route: 048
  9. FELODIPINE [Concomitant]
     Dosage: 10 MG
     Route: 048
  10. KEPPRA [Concomitant]
     Dosage: 1000 MG
     Route: 048
  11. SIMVASTATIN [Concomitant]
     Dosage: 40 MG
     Route: 048
  12. LANTUS [Concomitant]
     Dosage: 60 RT
     Route: 058
  13. ALLOPURINOL [Concomitant]
     Dosage: 100 MG
     Route: 048

REACTIONS (1)
  - Cerebrovascular accident [Recovered/Resolved]
